FAERS Safety Report 4397922-7 (Version None)
Quarter: 2004Q3

REPORT INFORMATION
  Report Type: 
  Country: None (occurrence: None)
  Receive Date: 20040714
  Receipt Date: 20040708
  Transmission Date: 20050211
  Serious: Yes (Hospitalization)
  Sender: FDA-Public Use
  Company Number: GB-MERCK-0407GBR00083

PATIENT
  Age: 67 Year
  Sex: Female

DRUGS (15)
  1. ALBUTEROL [Concomitant]
     Indication: ASTHMA
     Route: 055
  2. AMIODARONE [Concomitant]
     Indication: ATRIAL FIBRILLATION
     Route: 048
  3. BENDROFLUMETHIAZIDE [Concomitant]
     Indication: BLOOD PRESSURE INCREASED
     Route: 048
  4. FLUTICASONE PROPIONATE AND SALMETEROL XINAFOATE [Concomitant]
     Indication: ASTHMA
     Route: 055
  5. FUROSEMIDE [Concomitant]
     Indication: CARDIAC FAILURE CONGESTIVE
     Route: 048
  6. GLICLAZIDE [Concomitant]
     Indication: DIABETES MELLITUS
     Route: 048
  7. GLICLAZIDE [Concomitant]
     Route: 048
  8. IPRATROPIUM BROMIDE [Concomitant]
     Indication: ASTHMA
     Route: 055
  9. ISOSORBIDE MONONITRATE [Concomitant]
     Indication: PAIN
     Route: 048
  10. LEVOTHYROXINE SODIUM [Concomitant]
     Indication: HYPOTHYROIDISM
     Route: 048
  11. COZAAR [Concomitant]
     Indication: CARDIAC FAILURE CONGESTIVE
     Route: 048
  12. OMEPRAZOLE [Concomitant]
     Indication: GASTRITIS
     Route: 048
  13. VIOXX [Suspect]
     Indication: PAIN
     Route: 048
     Dates: start: 20040615, end: 20040622
  14. SPIRONOLACTONE [Concomitant]
     Indication: CARDIAC FAILURE CONGESTIVE
     Route: 048
  15. WARFARIN [Concomitant]
     Indication: ATRIAL FIBRILLATION
     Route: 048

REACTIONS (2)
  - CARDIAC FAILURE [None]
  - RENAL FAILURE CHRONIC [None]
